FAERS Safety Report 25664679 (Version 2)
Quarter: 2025Q3

REPORT INFORMATION
  Report Type: Spontaneous
  Country: EU (occurrence: EU)
  Receive Date: 20250811
  Receipt Date: 20250819
  Transmission Date: 20251021
  Serious: Yes (Hospitalization)
  Sender: TEVA
  Company Number: None

PATIENT
  Age: 73 Year
  Sex: Female
  Weight: 69 kg

DRUGS (6)
  1. ESCITALOPRAM [Suspect]
     Active Substance: ESCITALOPRAM OXALATE
     Indication: Product used for unknown indication
     Dosage: ESCITALOPRAM TEVA
     Route: 048
     Dates: start: 20240220, end: 20240229
  2. PREVENAR [Suspect]
     Active Substance: PNEUMOCOCCAL 7-VALENT CONJUGATE VACCINE (DIPHTHERIA CRM197 PROTEIN)
     Indication: Immunisation
     Route: 030
     Dates: start: 20240223, end: 20240223
  3. REPEVAX [Suspect]
     Active Substance: DIPHTHERIA AND TETANUS TOXOIDS AND ACELLULAR PERTUSSIS ADSORBED AND INACTIVATED POLIOVIRUS VACCINE
     Indication: Immunisation
     Route: 030
     Dates: start: 20240223, end: 20240223
  4. SMECTA [Suspect]
     Active Substance: MONTMORILLONITE
     Indication: Diarrhoea
     Route: 048
     Dates: start: 20240221, end: 20240227
  5. CEFAZOLIN SODIUM [Suspect]
     Active Substance: CEFAZOLIN SODIUM
     Indication: Bacteraemia
     Route: 042
     Dates: start: 20240219, end: 20240225
  6. MAGNESIUM LACTATE\PYRIDOXINE HYDROCHLORIDE [Suspect]
     Active Substance: MAGNESIUM LACTATE\PYRIDOXINE HYDROCHLORIDE
     Indication: Hypovitaminosis
     Dosage: MAGNESIUM/VITAMINE B6 VIATRIS CONSEIL
     Route: 048
     Dates: start: 20240218, end: 20240229

REACTIONS (1)
  - Rash maculo-papular [Recovered/Resolved]

NARRATIVE: CASE EVENT DATE: 20240226
